FAERS Safety Report 8961635 (Version 2)
Quarter: 2013Q1

REPORT INFORMATION
  Report Type: Spontaneous
  Country: US (occurrence: US)
  Receive Date: 20121213
  Receipt Date: 20130214
  Transmission Date: 20140127
  Serious: Yes (Hospitalization)
  Sender: FDA-Public Use
  Company Number: US-ELI_LILLY_AND_COMPANY-US201212000390

PATIENT
  Sex: Female
  Weight: 78.01 kg

DRUGS (7)
  1. FORTEO [Suspect]
     Indication: OSTEOPOROSIS
     Dosage: 20 UG, QD
     Dates: start: 201203
  2. SIMVASTIN [Concomitant]
  3. ZOCOR [Concomitant]
  4. SYNTHROID [Concomitant]
  5. VITAMIN D3 [Concomitant]
  6. AMBIEN [Concomitant]
  7. TYLENOL /00020001/ [Concomitant]

REACTIONS (7)
  - Osteoarthritis [Unknown]
  - Arthritis [Unknown]
  - Injection site erythema [Not Recovered/Not Resolved]
  - Anxiety [Unknown]
  - Injection site pruritus [Not Recovered/Not Resolved]
  - Injection site pain [Not Recovered/Not Resolved]
  - Injection site bruising [Unknown]
